FAERS Safety Report 18748657 (Version 1)
Quarter: 2021Q1

REPORT INFORMATION
  Report Type: Spontaneous
  Country: PL (occurrence: PL)
  Receive Date: 20210115
  Receipt Date: 20210115
  Transmission Date: 20210419
  Serious: Yes (Other)
  Sender: FDA-Public Use
  Company Number: PL-NOVOPROD-728595

PATIENT
  Age: 20 Year
  Sex: Female
  Weight: 95 kg

DRUGS (1)
  1. INSULATARD NPH HUMAN [Suspect]
     Active Substance: INSULIN HUMAN
     Indication: GESTATIONAL DIABETES
     Dosage: 34 IU (FOR 3 WEEKS WITH A DOSE 34 UNITS)
     Route: 058

REACTIONS (3)
  - Hypoglycaemia [Recovered/Resolved]
  - Maternal exposure during pregnancy [Recovered/Resolved]
  - Induced labour [Recovered/Resolved]
